FAERS Safety Report 6976135-6 (Version None)
Quarter: 2010Q3

REPORT INFORMATION
  Report Type: 
  Country: None (occurrence: None)
  Receive Date: 20100910
  Receipt Date: 20100830
  Transmission Date: 20110219
  Serious: Yes (Hospitalization, Other)
  Sender: FDA-Public Use
  Company Number: JP-PFIZER INC-2010068190

PATIENT
  Age: 70 Year
  Sex: Female
  Weight: 41.4 kg

DRUGS (18)
  1. SILDENAFIL CITRATE [Suspect]
     Indication: PULMONARY HYPERTENSION
     Dosage: 40 MG, 2X/DAY
     Route: 048
     Dates: start: 20100126, end: 20100312
  2. SILDENAFIL CITRATE [Suspect]
     Dosage: 60 MG, 3X/DAY
     Route: 048
     Dates: start: 20100313, end: 20100516
  3. SILDENAFIL CITRATE [Suspect]
     Dosage: 40 MG, 1X/DAY
     Dates: start: 20100517
  4. VALSARTAN [Suspect]
     Dosage: 40 MG, UNK
     Route: 048
     Dates: end: 20100428
  5. ADALAT CC [Suspect]
     Dosage: 20 MG, UNK
     Route: 048
     Dates: end: 20100417
  6. DORNER [Concomitant]
     Indication: PULMONARY HYPERTENSION
     Dosage: 60 UG, 1X/DAY
  7. DORNER [Concomitant]
     Dosage: UNK
     Route: 048
     Dates: start: 20100407
  8. DORNER [Concomitant]
     Dosage: 40 UG, 1X/DAY
  9. WARFARIN [Concomitant]
     Indication: PULMONARY HYPERTENSION
     Dosage: UNK
     Route: 048
  10. FAMOTIDINE [Concomitant]
     Dosage: UNK
  11. KINEDAK [Concomitant]
     Dosage: UNK
     Route: 048
  12. STARSIS [Concomitant]
     Dosage: UNK
     Route: 048
     Dates: end: 20100412
  13. THYRADIN S [Concomitant]
     Dosage: UNK
     Route: 048
  14. AMITRIPTYLINE HCL [Concomitant]
     Dosage: UNK
     Route: 048
  15. MEXITIL [Concomitant]
     Dosage: UNK
     Route: 048
     Dates: end: 20100318
  16. ALLEGRA [Concomitant]
     Dosage: UNK
     Route: 048
     Dates: start: 20100317
  17. GLUFAST [Concomitant]
     Dosage: UNK
     Route: 048
     Dates: start: 20100413
  18. EPOGIN [Concomitant]
     Dosage: UNK
     Route: 058
     Dates: start: 20100413

REACTIONS (2)
  - CARDIAC FAILURE CONGESTIVE [None]
  - HYPOTENSION [None]
